FAERS Safety Report 4457273-9 (Version None)
Quarter: 2004Q3

REPORT INFORMATION
  Report Type: 
  Country: None (occurrence: None)
  Receive Date: 20040921
  Receipt Date: 20040913
  Transmission Date: 20050211
  Serious: Yes (Death, Hospitalization, Other)
  Sender: FDA-Public Use
  Company Number: US-JNJFOC-20040903626

PATIENT
  Age: 35 Year
  Sex: Female

DRUGS (6)
  1. ACETAMINOPHEN [Suspect]
     Indication: SUICIDE ATTEMPT
  2. IBUPROFEN [Suspect]
     Indication: SUICIDE ATTEMPT
  3. OXCARBAZEPINE (OXCARBAZEPINE) [Suspect]
     Indication: SUICIDE ATTEMPT
  4. AMPHETAMINE/DEXTROAMPHETAMINE (DEXAMEFETAMINE) [Suspect]
     Indication: SUICIDE ATTEMPT
  5. TRAZODONE HCL [Suspect]
     Indication: SUICIDE ATTEMPT
  6. PAROXETINE HCL [Suspect]
     Indication: SUICIDE ATTEMPT

REACTIONS (15)
  - ALANINE AMINOTRANSFERASE INCREASED [None]
  - ASPARTATE AMINOTRANSFERASE INCREASED [None]
  - BLOOD BILIRUBIN INCREASED [None]
  - BLOOD LACTATE DEHYDROGENASE INCREASED [None]
  - CHROMATURIA [None]
  - COMA [None]
  - DEHYDRATION [None]
  - HAEMODIALYSIS [None]
  - HYPOTENSION [None]
  - HYPOXIA [None]
  - INTERNATIONAL NORMALISED RATIO INCREASED [None]
  - LIVER TRANSPLANT [None]
  - RENAL FAILURE [None]
  - SOMNOLENCE [None]
  - TACHYCARDIA [None]
